FAERS Safety Report 4841079-2 (Version None)
Quarter: 2005Q4

REPORT INFORMATION
  Report Type: 
  Country: None (occurrence: None)
  Receive Date: 20051130
  Receipt Date: 20050919
  Transmission Date: 20060501
  Serious: No
  Sender: FDA-Public Use
  Company Number: US-BRISTOL-MYERS SQUIBB COMPANY-13114798

PATIENT
  Age: 52 Year
  Sex: Female
  Weight: 68 kg

DRUGS (7)
  1. ABILIFY [Suspect]
     Indication: POST-TRAUMATIC STRESS DISORDER
     Route: 048
     Dates: start: 20050913, end: 20050915
  2. ZOLOFT [Concomitant]
  3. BUSPAR [Concomitant]
  4. DIFLUCAN [Concomitant]
  5. DETROL LA [Concomitant]
  6. ESTROGEN [Concomitant]
  7. LEVOXYL [Concomitant]

REACTIONS (2)
  - ANXIETY [None]
  - INSOMNIA [None]
